FAERS Safety Report 6838835-8 (Version None)
Quarter: 2010Q3

REPORT INFORMATION
  Report Type: 
  Country: None (occurrence: None)
  Receive Date: 20100713
  Receipt Date: 20070718
  Transmission Date: 20110219
  Serious: No
  Sender: FDA-Public Use
  Company Number: US-PFIZER INC-2007034900

PATIENT
  Sex: Female
  Weight: 63.5 kg

DRUGS (5)
  1. CHANTIX [Suspect]
     Indication: SMOKING CESSATION THERAPY
     Dates: start: 20070416, end: 20070426
  2. SYNTHROID [Concomitant]
  3. CYTOMEL [Concomitant]
  4. TOPROL-XL [Concomitant]
  5. TEMAZEPAM [Concomitant]
     Indication: SLEEP DISORDER

REACTIONS (10)
  - CHEST DISCOMFORT [None]
  - CHEST PAIN [None]
  - DIARRHOEA [None]
  - DYSPNOEA [None]
  - FATIGUE [None]
  - MALAISE [None]
  - NAUSEA [None]
  - NIGHTMARE [None]
  - STRESS [None]
  - VOMITING [None]
